FAERS Safety Report 15383243 (Version 1)
Quarter: 2018Q3

REPORT INFORMATION
  Report Type: Spontaneous
  Country: US (occurrence: US)
  Receive Date: 20180913
  Receipt Date: 20180913
  Transmission Date: 20181010
  Serious: No
  Sender: FDA-Public Use
  Company Number: US-ASTELLAS-2017US042511

PATIENT
  Sex: Male

DRUGS (1)
  1. XTANDI [Suspect]
     Active Substance: ENZALUTAMIDE
     Indication: HORMONE-REFRACTORY PROSTATE CANCER
     Route: 048

REACTIONS (8)
  - Photophobia [Unknown]
  - Dysgeusia [Unknown]
  - Decreased appetite [Unknown]
  - Prostatic specific antigen increased [Unknown]
  - Balance disorder [Unknown]
  - Fatigue [Unknown]
  - Somnolence [Unknown]
  - Vision blurred [Unknown]
